FAERS Safety Report 9326355 (Version 2)
Quarter: 2013Q3

REPORT INFORMATION
  Report Type: Spontaneous
  Country: CH (occurrence: CH)
  Receive Date: 20130604
  Receipt Date: 20130802
  Transmission Date: 20140515
  Serious: Yes (Other)
  Sender: FDA-Public Use
  Company Number: CH-ABBOTT-13P-151-1097145-00

PATIENT
  Age: 65 Year
  Sex: Male
  Weight: 108 kg

DRUGS (4)
  1. HUMIRA [Suspect]
     Indication: PSORIASIS
     Route: 058
     Dates: start: 201107, end: 201301
  2. MICARDIS PLUS [Concomitant]
     Indication: ESSENTIAL HYPERTENSION
     Route: 048
  3. ASPIRIN CARDIO [Concomitant]
     Indication: PROPHYLAXIS
     Route: 048
  4. BRUFEN [Concomitant]
     Indication: PRODUCT USED FOR UNKNOWN INDICATION
     Route: 048

REACTIONS (3)
  - Polyneuropathy [Not Recovered/Not Resolved]
  - Hypoaesthesia [Not Recovered/Not Resolved]
  - Paraesthesia [Not Recovered/Not Resolved]
